FAERS Safety Report 5416618-3 (Version None)
Quarter: 2007Q3

REPORT INFORMATION
  Report Type: 
  Country: None (occurrence: None)
  Receive Date: 20070815
  Receipt Date: 20070815
  Transmission Date: 20080115
  Serious: Yes (Life-Threatening, Other)
  Sender: FDA-Public Use
  Company Number: None

PATIENT
  Age: 58 Year
  Sex: Male
  Weight: 135.1719 kg

DRUGS (1)
  1. ACTOS [Suspect]
     Indication: DIABETES MELLITUS
     Dosage: 45 MG ONE A DAY PO
     Route: 048
     Dates: start: 20020103, end: 20070813

REACTIONS (2)
  - CARDIAC FAILURE [None]
  - WEIGHT INCREASED [None]
